FAERS Safety Report 10433378 (Version 1)
Quarter: 2014Q3

REPORT INFORMATION
  Report Type: Spontaneous
  Country: US (occurrence: US)
  Receive Date: 20140905
  Receipt Date: 20140905
  Transmission Date: 20150326
  Serious: No
  Sender: FDA-Public Use
  Company Number: US-009507513-1409USA001473

PATIENT

DRUGS (1)
  1. NEXPLANON [Suspect]
     Active Substance: ETONOGESTREL
     Dosage: 68MG, ONE ROD INSERTED EVERY 3 YEARS
     Route: 059
     Dates: start: 20140805

REACTIONS (2)
  - Device difficult to use [Unknown]
  - No adverse event [Unknown]
